FAERS Safety Report 5542715-8 (Version None)
Quarter: 2007Q4

REPORT INFORMATION
  Report Type: 
  Country: None (occurrence: None)
  Receive Date: 20071210
  Receipt Date: 20071128
  Transmission Date: 20080405
  Serious: Yes (Other)
  Sender: FDA-Public Use
  Company Number: US-PFIZER INC-2007028042

PATIENT
  Sex: Male
  Weight: 97.5 kg

DRUGS (11)
  1. CHANTIX [Suspect]
     Indication: SMOKING CESSATION THERAPY
     Dates: start: 20070318, end: 20070801
  2. ZETIA [Suspect]
  3. LITHIUM CARBONATE [Concomitant]
  4. SEROQUEL [Concomitant]
  5. BUPRENORPHINE HYDROCHLORIDE/NALOXONE HYDROCHLORIDE [Concomitant]
  6. GEODON [Concomitant]
  7. VITAMIN CAP [Concomitant]
  8. PROVENTIL GENTLEHALER [Concomitant]
  9. NALOXONE [Concomitant]
  10. LEXAPRO [Concomitant]
  11. REGLAN [Concomitant]

REACTIONS (3)
  - ALANINE AMINOTRANSFERASE INCREASED [None]
  - ASPARTATE AMINOTRANSFERASE INCREASED [None]
  - BLOOD ALKALINE PHOSPHATASE INCREASED [None]
